FAERS Safety Report 5162835-X (Version None)
Quarter: 2006Q4

REPORT INFORMATION
  Report Type: 
  Country: None (occurrence: None)
  Receive Date: 20061201
  Receipt Date: 20010212
  Transmission Date: 20070319
  Serious: Yes (Hospitalization)
  Sender: FDA-Public Use
  Company Number: FR-GLAXOSMITHKLINE-B0098963A

PATIENT
  Sex: Female
  Weight: 2.9 kg

DRUGS (8)
  1. EPIVIR [Suspect]
     Indication: HIV INFECTION
     Route: 048
  2. LAMIVUDINE [Suspect]
     Indication: HIV INFECTION
     Route: 048
  3. RETROVIR [Suspect]
     Indication: ANTIVIRAL PROPHYLAXIS
     Route: 042
  4. STAVUDINE [Suspect]
     Indication: HIV INFECTION
     Route: 048
  5. NELFINAVIR [Suspect]
     Indication: HIV INFECTION
     Route: 048
  6. STAVUDINE [Suspect]
     Route: 048
  7. INTERFERON [Concomitant]
  8. METHADONE HCL [Concomitant]

REACTIONS (8)
  - ANAEMIA [None]
  - ANAEMIA NEONATAL [None]
  - BLOOD LACTIC ACID INCREASED [None]
  - CAESAREAN SECTION [None]
  - DRUG EXPOSURE DURING PREGNANCY [None]
  - HEPATOMEGALY [None]
  - HYPERTRIGLYCERIDAEMIA [None]
  - THROMBOCYTHAEMIA [None]
